FAERS Safety Report 9177498 (Version 2)
Quarter: 2013Q2

REPORT INFORMATION
  Report Type: Spontaneous
  Country: US (occurrence: None)
  Receive Date: 20120531
  Receipt Date: 20130130
  Transmission Date: 20140414
  Serious: Yes (Hospitalization, Other)
  Sender: FDA-Public Use
  Company Number: US201201007483

PATIENT
  Age: 73 Year
  Sex: Male

DRUGS (8)
  1. BYETTA (EXENATIDE) PEN, DISPOSABLE [Suspect]
     Route: 058
     Dates: start: 20061009, end: 20061110
  2. NORVASC (AMLODIPINE BESILATE) [Concomitant]
  3. ASPIRIN (ACETYLSALICYLIC ACID) [Concomitant]
  4. PRILOSEC (OMEPRAZOLE) [Concomitant]
  5. TUMS [Concomitant]
  6. HYDRALAZINE (HYDRALAZINE) [Concomitant]
  7. COREG (CARVEDILOL) [Concomitant]
  8. NITROGLYCERIN (GLYCERYL TRINITRATE) [Concomitant]

REACTIONS (3)
  - Renal failure [None]
  - Pancreatitis [None]
  - Renal failure chronic [None]
